FAERS Safety Report 8395251-8 (Version None)
Quarter: 2012Q2

REPORT INFORMATION
  Report Type: 
  Country: None (occurrence: None)
  Receive Date: 20120530
  Receipt Date: 20120522
  Transmission Date: 20120825
  Serious: Yes (Other)
  Sender: FDA-Public Use
  Company Number: US-UCBSA-057877

PATIENT
  Age: 39 Year
  Sex: Male

DRUGS (1)
  1. KEPPRA XR [Suspect]
     Dosage: DRUG STRENGTH: 750 MG, 1.5 TAB TWICE A DAY

REACTIONS (10)
  - HYPOAESTHESIA [None]
  - INSOMNIA [None]
  - AMNESIA [None]
  - MEDICATION ERROR [None]
  - PARAESTHESIA [None]
  - MUSCLE TWITCHING [None]
  - VISION BLURRED [None]
  - SKIN EXFOLIATION [None]
  - OEDEMA PERIPHERAL [None]
  - BRAIN OPERATION [None]
